FAERS Safety Report 16766556 (Version 5)
Quarter: 2019Q4

REPORT INFORMATION
  Report Type: Spontaneous
  Country: US (occurrence: US)
  Receive Date: 20190903
  Receipt Date: 20191227
  Transmission Date: 20200122
  Serious: No
  Sender: FDA-Public Use
  Company Number: US-PFIZER INC-2019371146

PATIENT
  Age: 55 Year
  Sex: Male

DRUGS (1)
  1. BESPONSA [Suspect]
     Active Substance: INOTUZUMAB OZOGAMICIN
     Indication: ACUTE LYMPHOCYTIC LEUKAEMIA
     Dosage: 1 MG, UNK

REACTIONS (12)
  - Night sweats [Unknown]
  - Vomiting [Unknown]
  - Weight decreased [Unknown]
  - Gingival bleeding [Unknown]
  - Diarrhoea [Unknown]
  - Dysphonia [Unknown]
  - Neoplasm progression [Unknown]
  - Nausea [Unknown]
  - Oral contusion [Unknown]
  - Musculoskeletal chest pain [Unknown]
  - Contusion [Unknown]
  - Pain [Unknown]
